FAERS Safety Report 5168951-0 (Version None)
Quarter: 2006Q4

REPORT INFORMATION
  Report Type: 
  Country: None (occurrence: None)
  Receive Date: 20061211
  Receipt Date: 20061204
  Transmission Date: 20070319
  Serious: Yes (Death)
  Sender: FDA-Public Use
  Company Number: US-GLAXOSMITHKLINE-A0630924A

PATIENT
  Age: 48 Year
  Sex: Male

DRUGS (2)
  1. FLONASE [Suspect]
     Indication: VIRAL SINUSITIS
     Route: 045
     Dates: start: 20020101, end: 20020101
  2. TYLENOL W/ CODEINE NO. 2 [Concomitant]
     Indication: DRUG USE FOR UNKNOWN INDICATION
     Route: 065
     Dates: start: 20020101, end: 20020101

REACTIONS (10)
  - DEATH [None]
  - DRUG ADMINISTRATION ERROR [None]
  - HEADACHE [None]
  - ILL-DEFINED DISORDER [None]
  - JOINT RANGE OF MOTION DECREASED [None]
  - MENINGITIS [None]
  - PAIN [None]
  - SINUSITIS BACTERIAL [None]
  - SWELLING [None]
  - TENDERNESS [None]
